FAERS Safety Report 7407594-2 (Version None)
Quarter: 2011Q2

REPORT INFORMATION
  Report Type: 
  Country: None (occurrence: None)
  Receive Date: 20110405
  Receipt Date: 20110326
  Transmission Date: 20111010
  Serious: Yes (Hospitalization)
  Sender: FDA-Public Use
  Company Number: 2011SP013782

PATIENT
  Age: 37 Year
  Sex: Male

DRUGS (3)
  1. TEMODAL [Suspect]
     Indication: OLIGODENDROGLIOMA
     Dosage: 5 MG, PO
     Route: 048
     Dates: start: 20110305, end: 20110307
  2. CHEMOTHERAPY [Concomitant]
  3. RADIOTHERAPY [Concomitant]

REACTIONS (4)
  - RASH [None]
  - LEUKOPENIA [None]
  - HAEMOLYSIS [None]
  - HELLP SYNDROME [None]
